FAERS Safety Report 5058053-6 (Version None)
Quarter: 2006Q2

REPORT INFORMATION
  Report Type: 
  Country: None (occurrence: None)
  Receive Date: 20060627
  Receipt Date: 20060426
  Transmission Date: 20061013
  Serious: No
  Sender: FDA-Public Use
  Company Number: SP00843

PATIENT
  Age: 44 Year
  Sex: Female
  Weight: 58.9676 kg

DRUGS (2)
  1. XIFAXAN [Suspect]
     Indication: IRRITABLE BOWEL SYNDROME
     Dosage: 200MG/2 TABLETS BID,ORAL
     Route: 048
     Dates: start: 20060321
  2. ACIPHEX [Concomitant]

REACTIONS (1)
  - FUNGAL INFECTION [None]
